FAERS Safety Report 25768885 (Version 1)
Quarter: 2025Q3

REPORT INFORMATION
  Report Type: Spontaneous
  Country: EU (occurrence: EU)
  Receive Date: 20250905
  Receipt Date: 20250905
  Transmission Date: 20251020
  Serious: Yes (Death)
  Sender: BAUSCH AND LOMB
  Company Number: None

PATIENT
  Age: 54 Year
  Sex: Male
  Weight: 65 kg

DRUGS (22)
  1. METFORMIN [Suspect]
     Active Substance: METFORMIN HYDROCHLORIDE
     Indication: Diabetes mellitus
     Route: 048
     Dates: end: 20250721
  2. METFORMIN [Suspect]
     Active Substance: METFORMIN HYDROCHLORIDE
     Route: 048
     Dates: start: 2025
  3. ELIQUIS [Suspect]
     Active Substance: APIXABAN
     Indication: Atrial fibrillation
     Dosage: COATED TABLET
     Route: 048
     Dates: end: 20250721
  4. ELIQUIS [Suspect]
     Active Substance: APIXABAN
     Dosage: COATED TABLET
     Route: 048
     Dates: start: 2025
  5. AMIODARONE [Suspect]
     Active Substance: AMIODARONE
     Indication: Atrial fibrillation
     Route: 048
     Dates: end: 20250721
  6. AMIODARONE [Suspect]
     Active Substance: AMIODARONE
     Route: 048
     Dates: start: 2025
  7. FUROSEMIDE [Suspect]
     Active Substance: FUROSEMIDE
     Indication: Product used for unknown indication
     Route: 048
     Dates: end: 20250721
  8. FUROSEMIDE [Suspect]
     Active Substance: FUROSEMIDE
     Route: 048
     Dates: start: 2025
  9. FOLIC ACID [Suspect]
     Active Substance: FOLIC ACID
     Indication: Product used for unknown indication
     Route: 048
     Dates: end: 20250721
  10. FOLIC ACID [Suspect]
     Active Substance: FOLIC ACID
     Route: 048
     Dates: start: 2025
  11. FERROUS SULFATE [Suspect]
     Active Substance: FERROUS SULFATE
     Indication: Product used for unknown indication
     Route: 048
     Dates: end: 20250721
  12. FERROUS SULFATE [Suspect]
     Active Substance: FERROUS SULFATE
     Route: 048
     Dates: start: 2025
  13. INSULIN NOS [Suspect]
     Active Substance: INSULIN NOS
     Indication: Diabetes mellitus
     Route: 058
     Dates: end: 20250721
  14. INSULIN NOS [Suspect]
     Active Substance: INSULIN NOS
     Route: 058
     Dates: start: 2025
  15. TRULICITY [Suspect]
     Active Substance: DULAGLUTIDE
     Indication: Diabetes mellitus
     Route: 058
     Dates: end: 20250721
  16. TRULICITY [Suspect]
     Active Substance: DULAGLUTIDE
     Route: 058
     Dates: start: 2025
  17. ESOMEPRAZOLE [Suspect]
     Active Substance: ESOMEPRAZOLE
     Indication: Product used for unknown indication
     Route: 048
     Dates: end: 20250721
  18. ESOMEPRAZOLE [Suspect]
     Active Substance: ESOMEPRAZOLE
     Route: 048
     Dates: start: 2025
  19. CLOMIPRAMINE [Suspect]
     Active Substance: CLOMIPRAMINE
     Indication: Product used for unknown indication
     Route: 048
     Dates: end: 20250721
  20. CLOMIPRAMINE [Suspect]
     Active Substance: CLOMIPRAMINE
     Route: 048
     Dates: start: 2025
  21. POTASSIUM CHLORIDE [Suspect]
     Active Substance: POTASSIUM CHLORIDE
     Indication: Hypokalaemia
     Route: 048
     Dates: end: 20250721
  22. POTASSIUM CHLORIDE [Suspect]
     Active Substance: POTASSIUM CHLORIDE
     Route: 048
     Dates: start: 2025

REACTIONS (5)
  - Cardiogenic shock [Fatal]
  - Renal ischaemia [Fatal]
  - Intestinal ischaemia [Fatal]
  - Gastrointestinal haemorrhage [Fatal]
  - Lactic acidosis [Fatal]

NARRATIVE: CASE EVENT DATE: 20250721
